FAERS Safety Report 17647772 (Version 1)
Quarter: 2020Q2

REPORT INFORMATION
  Report Type: Spontaneous
  Country: US (occurrence: US)
  Receive Date: 20200409
  Receipt Date: 20200409
  Transmission Date: 20200713
  Serious: Yes (Death)
  Sender: FDA-Public Use
  Company Number: US-ADAREPHARM-2020-US-000035

PATIENT
  Age: 1 Week
  Sex: Male

DRUGS (4)
  1. MEXILETINE [Suspect]
     Active Substance: MEXILETINE
  2. MAGNESIUM [Concomitant]
     Active Substance: MAGNESIUM
  3. LIDOCAINE. [Concomitant]
     Active Substance: LIDOCAINE
  4. PROPRANOLOL [Suspect]
     Active Substance: PROPRANOLOL HYDROCHLORIDE
     Indication: VENTRICULAR ARRHYTHMIA

REACTIONS (1)
  - Drug ineffective for unapproved indication [Fatal]
